FAERS Safety Report 10018252 (Version 1)
Quarter: 2014Q1

REPORT INFORMATION
  Report Type: Spontaneous
  Country: US (occurrence: US)
  Receive Date: 20140318
  Receipt Date: 20140318
  Transmission Date: 20141002
  Serious: No
  Sender: FDA-Public Use
  Company Number: US-BRISTOL-MYERS SQUIBB COMPANY-19645977

PATIENT
  Sex: 0

DRUGS (1)
  1. ERBITUX [Suspect]
     Dosage: 1 DF:200MG/100ML

REACTIONS (1)
  - Circumstance or information capable of leading to medication error [Unknown]
